FAERS Safety Report 14299743 (Version 2)
Quarter: 2018Q1

REPORT INFORMATION
  Report Type: Report from Study
  Country: JP (occurrence: JP)
  Receive Date: 20171219
  Receipt Date: 20180101
  Transmission Date: 20180509
  Serious: Yes (Hospitalization)
  Sender: FDA-Public Use
  Company Number: JP-ROCHE-2039961

PATIENT
  Age: 90 Year
  Sex: Female

DRUGS (1)
  1. RANIBIZUMAB. [Suspect]
     Active Substance: RANIBIZUMAB
     Indication: RETINAL VEIN OCCLUSION
     Dosage: ALSO RECEIVED ON 22/DEC/2015, 26/JAN/2016, 29/MAR/2016, 31/MAY/2016, 02/AUG/2016, 01/NOV/2016, 17/JA
     Route: 031
     Dates: start: 20151127

REACTIONS (3)
  - Chest pain [Unknown]
  - Angina pectoris [Recovered/Resolved]
  - Coronary artery stenosis [Unknown]

NARRATIVE: CASE EVENT DATE: 20170525
